FAERS Safety Report 22128819 (Version 1)
Quarter: 2023Q1

REPORT INFORMATION
  Report Type: Report from Study
  Country: US (occurrence: None)
  Receive Date: 20230323
  Receipt Date: 20230323
  Transmission Date: 20230417
  Serious: Yes (Death, Hospitalization, Other)
  Sender: FDA-Public Use
  Company Number: US-ROCHE-2496769

PATIENT
  Age: 74 Year
  Sex: Male
  Weight: 72.6 kg

DRUGS (4)
  1. ATEZOLIZUMAB [Suspect]
     Active Substance: ATEZOLIZUMAB
     Indication: Bladder cancer
     Dosage: LAST DOSE ON 15/NOV/2018
     Route: 041
     Dates: start: 20180914
  2. ATEZOLIZUMAB [Suspect]
     Active Substance: ATEZOLIZUMAB
     Indication: Genitourinary tract neoplasm
  3. GEMCITABINE [Suspect]
     Active Substance: GEMCITABINE
     Indication: Genitourinary tract neoplasm
     Route: 065
     Dates: start: 20190110
  4. CISPLATIN [Suspect]
     Active Substance: CISPLATIN
     Indication: Genitourinary tract neoplasm
     Route: 065
     Dates: start: 20190110

REACTIONS (4)
  - Myositis [Fatal]
  - Febrile neutropenia [Recovered/Resolved]
  - Anaemia [Recovered/Resolved with Sequelae]
  - Platelet count decreased [Recovered/Resolved with Sequelae]

NARRATIVE: CASE EVENT DATE: 20190126
